FAERS Safety Report 7222856-X (Version None)
Quarter: 2011Q1

REPORT INFORMATION
  Report Type: 
  Country: None (occurrence: None)
  Receive Date: 20110112
  Receipt Date: 20100909
  Transmission Date: 20110831
  Serious: Yes (Hospitalization, Other)
  Sender: FDA-Public Use
  Company Number: US-BAYER-201026178NA

PATIENT
  Sex: Female
  Weight: 113 kg

DRUGS (12)
  1. YAZ [Suspect]
     Indication: ORAL CONTRACEPTION
     Dosage: UNK UNK, QD
     Route: 048
     Dates: start: 20080201, end: 20080715
  2. TRAMADOL HCL [Concomitant]
     Indication: PAIN
     Dosage: 50 MG, QID, PRN
     Route: 048
  3. ETODOLAC [Concomitant]
     Dosage: 500 MG, BID WITH FOOD
     Route: 048
  4. HYDROCODONE BITARTRATE AND ACETAMINOPHEN [Concomitant]
     Indication: PAIN
     Dosage: 1 DF, Q6H, PRN (5 MG/500 MG)
     Route: 048
  5. PENICILLIN VK [Concomitant]
     Dosage: 1 DF,  Q6H
     Route: 048
  6. METHYLPREDNISOLONE ACETATE [Concomitant]
     Indication: SWELLING
     Dosage: DOSE PACK
  7. PROMETHEGAN [Concomitant]
     Indication: NAUSEA
     Dosage: 25 MG, PRN, Q4H TO Q6H
     Route: 054
  8. DICYCLOMINE [Concomitant]
     Indication: NAUSEA
     Dosage: 20 MG, Q6H
     Route: 048
  9. NAPROXEN [Concomitant]
     Indication: PAIN
     Dosage: 500 MG, Q12H, PRN
     Route: 048
  10. PROMETHEGAN [Concomitant]
     Indication: VOMITING
  11. YASMIN [Suspect]
     Indication: ORAL CONTRACEPTION
     Dosage: UNK UNK, QD
     Route: 048
  12. DICYCLOMINE [Concomitant]
     Indication: PAIN

REACTIONS (12)
  - CHOLECYSTITIS CHRONIC [None]
  - NAUSEA [None]
  - VOMITING [None]
  - ANXIETY [None]
  - PULMONARY EMBOLISM [None]
  - PAIN IN EXTREMITY [None]
  - ABDOMINAL PAIN [None]
  - PROCEDURAL PAIN [None]
  - COORDINATION ABNORMAL [None]
  - CHOLELITHIASIS [None]
  - PULMONARY INFARCTION [None]
  - PAIN [None]
